FAERS Safety Report 13811071 (Version 1)
Quarter: 2017Q3

REPORT INFORMATION
  Report Type: Spontaneous
  Country: US (occurrence: US)
  Receive Date: 20170728
  Receipt Date: 20170728
  Transmission Date: 20171127
  Serious: Yes (Other)
  Sender: FDA-Public Use
  Company Number: US-ROCHE-1056823

PATIENT
  Age: 57 Year
  Sex: Female
  Weight: 67.19 kg

DRUGS (7)
  1. BONIVA [Suspect]
     Active Substance: IBANDRONATE SODIUM
     Indication: OSTEOPOROSIS
     Route: 042
     Dates: start: 20111015, end: 20120121
  2. CELEBREX [Concomitant]
     Active Substance: CELECOXIB
     Route: 048
  3. AMITRIPTYLINE [Concomitant]
     Active Substance: AMITRIPTYLINE
     Indication: ARTHRALGIA
     Dosage: AT BEDTIME
     Route: 048
  4. RISPERIDONE. [Concomitant]
     Active Substance: RISPERIDONE
     Route: 048
  5. OMEPRAZOLE. [Concomitant]
     Active Substance: OMEPRAZOLE
     Indication: GASTROOESOPHAGEAL REFLUX DISEASE
     Dosage: DAILY
     Route: 048
  6. BUSPIRONE [Concomitant]
     Active Substance: BUSPIRONE HYDROCHLORIDE
     Indication: ANXIETY
     Route: 048
  7. CALCIUM [Concomitant]
     Active Substance: CALCIUM

REACTIONS (10)
  - Arthralgia [Unknown]
  - Myalgia [Unknown]
  - Spondyloarthropathy [Unknown]
  - Malaise [Unknown]
  - Musculoskeletal stiffness [Unknown]
  - Autoimmune arthritis [Unknown]
  - Muscle twitching [Unknown]
  - Pain [Unknown]
  - Groin pain [Unknown]
  - Pain in extremity [Not Recovered/Not Resolved]

NARRATIVE: CASE EVENT DATE: 20111130
